FAERS Safety Report 6883707-6 (Version None)
Quarter: 2010Q3

REPORT INFORMATION
  Report Type: 
  Country: None (occurrence: None)
  Receive Date: 20100729
  Receipt Date: 20100723
  Transmission Date: 20110219
  Serious: Yes (Other)
  Sender: FDA-Public Use
  Company Number: A0872115A

PATIENT
  Age: 61 Year
  Sex: Female

DRUGS (5)
  1. ADVAIR DISKUS 100/50 [Suspect]
     Indication: PRODUCT USED FOR UNKNOWN INDICATION
     Dosage: 1PUFF TWICE PER DAY
     Route: 055
  2. VERAMYST [Concomitant]
  3. MAGNESIUM OXIDE [Concomitant]
  4. SYNTHROID [Concomitant]
  5. UNSPECIFIED INHALER [Concomitant]

REACTIONS (3)
  - DYSPHONIA [None]
  - INHALATION THERAPY [None]
  - PRODUCT QUALITY ISSUE [None]
